FAERS Safety Report 18159426 (Version 1)
Quarter: 2020Q3

REPORT INFORMATION
  Report Type: Spontaneous
  Country: JP (occurrence: JP)
  Receive Date: 20200818
  Receipt Date: 20200818
  Transmission Date: 20201103
  Serious: Yes (Hospitalization, Other)
  Sender: FDA-Public Use
  Company Number: JP-LUPIN PHARMACEUTICALS INC.-2020-04684

PATIENT
  Sex: Female

DRUGS (4)
  1. NADOLOL. [Suspect]
     Active Substance: NADOLOL
     Dosage: 0.3 MILLIGRAM/KILOGRAM, QD
     Route: 048
  2. NADOLOL. [Suspect]
     Active Substance: NADOLOL
     Dosage: 0.27 MILLIGRAM/KILOGRAM, QD
     Route: 048
  3. NADOLOL. [Suspect]
     Active Substance: NADOLOL
     Dosage: 30 MILLIGRAM, QD
     Route: 064
  4. NADOLOL. [Suspect]
     Active Substance: NADOLOL
     Indication: PRODUCT USED FOR UNKNOWN INDICATION
     Dosage: 15 MILLIGRAM, QD
     Route: 064

REACTIONS (3)
  - Sinus bradycardia [Recovered/Resolved]
  - Foetal exposure during pregnancy [Unknown]
  - Electrocardiogram QT prolonged [Recovered/Resolved]
